FAERS Safety Report 24270704 (Version 1)
Quarter: 2024Q3

REPORT INFORMATION
  Report Type: Spontaneous
  Country: CN (occurrence: CN)
  Receive Date: 20240831
  Receipt Date: 20240831
  Transmission Date: 20241016
  Serious: Yes (Hospitalization)
  Sender: MERCK KGAA
  Company Number: CN-Merck Healthcare KGaA-2024045147

PATIENT
  Sex: Female

DRUGS (1)
  1. EUTHYROX [Suspect]
     Active Substance: LEVOTHYROXINE SODIUM
     Indication: Hypothyroidism
     Route: 048

REACTIONS (2)
  - Prolonged pregnancy [Unknown]
  - Maternal exposure during pregnancy [Not Recovered/Not Resolved]
